FAERS Safety Report 8886557 (Version 3)
Quarter: 2014Q2

REPORT INFORMATION
  Report Type: Spontaneous
  Country: ES (occurrence: ES)
  Receive Date: 20121105
  Receipt Date: 20140423
  Transmission Date: 20141212
  Serious: Yes (Hospitalization)
  Sender: FDA-Public Use
  Company Number: ES-009507513-1211ESP000660

PATIENT
  Age: 76 Year
  Sex: Female

DRUGS (1)
  1. INVANZ [Suspect]
     Indication: PYELONEPHRITIS
     Dosage: UNK UNK, QD
     Route: 030
     Dates: start: 20120829, end: 20120902

REACTIONS (5)
  - Abnormal behaviour [Recovered/Resolved]
  - Hallucination, visual [Recovered/Resolved]
  - Muscular weakness [Recovered/Resolved]
  - Wrong drug administered [Recovered/Resolved]
  - Partial seizures [Recovered/Resolved]
